FAERS Safety Report 4541000-0 (Version None)
Quarter: 2004Q4

REPORT INFORMATION
  Report Type: 
  Country: None (occurrence: None)
  Receive Date: 20041228
  Receipt Date: 20041215
  Transmission Date: 20050328
  Serious: Yes (Disabling, Other)
  Sender: FDA-Public Use
  Company Number: 200410906BVD

PATIENT
  Age: 74 Year
  Sex: Male

DRUGS (8)
  1. LEVITRA [Suspect]
     Dosage: 20 MG, TOTAL DAILY, ORAL
     Route: 048
     Dates: start: 20040904
  2. UROXATRAL [Concomitant]
  3. ASPIRIN [Concomitant]
  4. ALLOPURINOL [Concomitant]
  5. SIMEHEXAL [Concomitant]
  6. TARKA [Concomitant]
  7. ACC [Concomitant]
  8. TRENTAL [Concomitant]

REACTIONS (1)
  - RETINAL ARTERY OCCLUSION [None]
